FAERS Safety Report 10700046 (Version 2)
Quarter: 2015Q1

REPORT INFORMATION
  Report Type: Spontaneous
  Country: US (occurrence: US)
  Receive Date: 20150109
  Receipt Date: 20150220
  Transmission Date: 20150721
  Serious: Yes (Other)
  Sender: FDA-Public Use
  Company Number: US-ELI_LILLY_AND_COMPANY-US201412009924

PATIENT
  Sex: Male
  Weight: 113.38 kg

DRUGS (1)
  1. CYMBALTA [Suspect]
     Active Substance: DULOXETINE HYDROCHLORIDE
     Indication: NEUROPATHY PERIPHERAL
     Dosage: UNK UNK, UNKNOWN
     Route: 065
     Dates: end: 2014

REACTIONS (5)
  - Violence-related symptom [Unknown]
  - Off label use [Unknown]
  - Self injurious behaviour [Unknown]
  - Feeling abnormal [Unknown]
  - Pain in extremity [Unknown]
